FAERS Safety Report 21892592 (Version 3)
Quarter: 2023Q4

REPORT INFORMATION
  Report Type: Spontaneous
  Country: FR (occurrence: FR)
  Receive Date: 20230120
  Receipt Date: 20231215
  Transmission Date: 20240109
  Serious: Yes (Life-Threatening, Hospitalization, Other)
  Sender: FDA-Public Use
  Company Number: FR-002147023-NVSC2022FR284089

PATIENT
  Age: 23 Year
  Sex: Male

DRUGS (5)
  1. VALGANCICLOVIR HYDROCHLORIDE [Suspect]
     Active Substance: VALGANCICLOVIR HYDROCHLORIDE
     Indication: Cytomegalovirus infection
     Dosage: UNK
     Route: 065
  2. VENETOCLAX [Suspect]
     Active Substance: VENETOCLAX
     Indication: B-cell type acute leukaemia
     Dosage: 400 MILLIGRAM, QD(ONCE A DAY)
     Route: 065
  3. DEXAMETHASONE [Suspect]
     Active Substance: DEXAMETHASONE
     Indication: B-cell type acute leukaemia
     Dosage: 20 MILLIGRAM, QD D1-4 AND D15-18
     Route: 065
  4. ONCASPAR [Suspect]
     Active Substance: PEGASPARGASE
     Indication: B-cell type acute leukaemia
     Dosage: ADMINISTERED 2500 IU/M 2 ON DAYS 2 AND 16
     Route: 042
  5. VINCRISTINE [Suspect]
     Active Substance: VINCRISTINE
     Indication: B-cell type acute leukaemia
     Dosage: 1.4 MILLIGRAM/SQ. METER, QW
     Route: 065

REACTIONS (9)
  - Infection [Unknown]
  - Infection in an immunocompromised host [Unknown]
  - Cytopenia [Unknown]
  - Tumour lysis syndrome [Unknown]
  - Febrile neutropenia [Unknown]
  - Neutropenia [Unknown]
  - Transplant dysfunction [Unknown]
  - Neuropathy peripheral [Unknown]
  - Product use in unapproved indication [Unknown]
